FAERS Safety Report 5222258-1 (Version None)
Quarter: 2007Q1

REPORT INFORMATION
  Report Type: 
  Country: None (occurrence: None)
  Receive Date: 20070129
  Receipt Date: 20070118
  Transmission Date: 20070707
  Serious: Yes (Death, Hospitalization, Other)
  Sender: FDA-Public Use
  Company Number: US-AVENTIS-200615717US

PATIENT
  Sex: Female
  Weight: 99 kg

DRUGS (13)
  1. ARAVA [Suspect]
     Indication: RHEUMATOID ARTHRITIS
     Dosage: DOSE: 100MG QD X3 THEN 20MG QD, 10-20MG QD
     Route: 048
     Dates: start: 19990521, end: 20030812
  2. METHOTREXATE [Concomitant]
     Dosage: DOSE: 7.5-20MG
     Dates: start: 19980716, end: 19990521
  3. METHOTREXATE [Concomitant]
     Dosage: DOSE: 7.5-20MG
     Dates: start: 20000428, end: 20030812
  4. PREDNISONE [Concomitant]
     Dosage: DOSE: UNK
  5. CELEBREX [Concomitant]
     Dates: end: 19991228
  6. VIOXX [Concomitant]
     Dates: start: 19991228, end: 20030503
  7. PLAQUENIL                          /00072603/ [Concomitant]
  8. FOLIC ACID [Concomitant]
  9. DITROPAN XL [Concomitant]
     Dosage: DOSE: UNK
  10. ACCUPRIL [Concomitant]
  11. ALDACTONE [Concomitant]
  12. MEDROL [Concomitant]
     Dosage: DOSE: UNK
  13. PROZAC [Concomitant]
     Dosage: DOSE: UNK

REACTIONS (33)
  - ALOPECIA [None]
  - ANXIETY [None]
  - BACTERAEMIA [None]
  - BLOOD ALBUMIN DECREASED [None]
  - BLOOD GLUCOSE INCREASED [None]
  - DYSPNOEA [None]
  - EMOTIONAL DISORDER [None]
  - FACIAL PALSY [None]
  - FATIGUE [None]
  - GASTRIC VARICES [None]
  - GASTRITIS [None]
  - GASTROENTERITIS VIRAL [None]
  - HEPATIC CIRRHOSIS [None]
  - HEPATIC STEATOSIS [None]
  - HEPATITIS A [None]
  - HEPATOCELLULAR DAMAGE [None]
  - HEPATORENAL SYNDROME [None]
  - HYPOTENSION [None]
  - MENTAL STATUS CHANGES [None]
  - MUSCULAR WEAKNESS [None]
  - NERVE COMPRESSION [None]
  - OEDEMA [None]
  - OEDEMA PERIPHERAL [None]
  - OSTEOMYELITIS [None]
  - PALPITATIONS [None]
  - PARAESTHESIA [None]
  - PNEUMONIA [None]
  - RECTAL HAEMORRHAGE [None]
  - SEPSIS [None]
  - SYNCOPE [None]
  - TRANSAMINASES INCREASED [None]
  - UMBILICAL HERNIA [None]
  - UPPER RESPIRATORY TRACT INFECTION [None]
